FAERS Safety Report 9242939 (Version 1)
Quarter: 2013Q2

REPORT INFORMATION
  Report Type: Spontaneous
  Country: HR (occurrence: HR)
  Receive Date: 20130419
  Receipt Date: 20130419
  Transmission Date: 20140414
  Serious: Yes (Other)
  Sender: FDA-Public Use
  Company Number: PHHY2013HR037622

PATIENT
  Age: 51 Year
  Sex: Female

DRUGS (6)
  1. BYOL [Suspect]
     Indication: HEART RATE INCREASED
     Dosage: 1 DF, DAILY
     Route: 048
     Dates: start: 2009
  2. TERTENSIF - SLOW RELEASE [Suspect]
     Indication: HYPERTENSION
     Dosage: 1 DF, DAILY
     Route: 048
     Dates: start: 2009
  3. RESOCHIN [Suspect]
     Indication: SYSTEMIC LUPUS ERYTHEMATOSUS
     Dosage: 1 DF, DAILY
     Route: 048
     Dates: start: 20100101
  4. NORMABEL [Concomitant]
     Dosage: 2 MG, AS NECESSARY
     Route: 048
  5. IBUPROFEN RETARD [Concomitant]
     Indication: PAIN
     Dosage: 2 DF, DAILY
     Route: 048
  6. PLIVIT D3 [Concomitant]
     Route: 048

REACTIONS (14)
  - Vision blurred [Not Recovered/Not Resolved]
  - Influenza like illness [Not Recovered/Not Resolved]
  - Tremor [Not Recovered/Not Resolved]
  - Chills [Not Recovered/Not Resolved]
  - Nasal congestion [Not Recovered/Not Resolved]
  - Sneezing [Not Recovered/Not Resolved]
  - Oropharyngeal pain [Not Recovered/Not Resolved]
  - Ear pain [Not Recovered/Not Resolved]
  - Contusion [Not Recovered/Not Resolved]
  - Blood potassium decreased [Not Recovered/Not Resolved]
  - Blood uric acid increased [Not Recovered/Not Resolved]
  - Peripheral coldness [Not Recovered/Not Resolved]
  - Rash [Not Recovered/Not Resolved]
  - Pruritus [Not Recovered/Not Resolved]
